FAERS Safety Report 7394500-2 (Version None)
Quarter: 2011Q2

REPORT INFORMATION
  Report Type: 
  Country: None (occurrence: None)
  Receive Date: 20110405
  Receipt Date: 20110324
  Transmission Date: 20111010
  Serious: No
  Sender: FDA-Public Use
  Company Number: PHHY2011JP20306

PATIENT
  Age: 17 Year
  Sex: Male

DRUGS (4)
  1. NIPOLAZIN [Concomitant]
     Dosage: 12 MG, UNK
     Route: 048
     Dates: start: 20110308
  2. ANAFRANIL [Concomitant]
     Dosage: 10 MG, UNK
     Route: 048
  3. TEGRETOL [Suspect]
     Dosage: 300 MG, TID
     Route: 048
     Dates: start: 20110308, end: 20110310
  4. BIO THREE [Concomitant]
     Dosage: 9 DF, UNK
     Route: 048

REACTIONS (1)
  - HEARING IMPAIRED [None]
